FAERS Safety Report 10204064 (Version 3)
Quarter: 2014Q2

REPORT INFORMATION
  Report Type: Spontaneous
  Country: AU (occurrence: AU)
  Receive Date: 20140529
  Receipt Date: 20140603
  Transmission Date: 20141212
  Serious: Yes (Hospitalization, Other)
  Sender: FDA-Public Use
  Company Number: PHHY2014AU059386

PATIENT
  Age: 86 Year
  Sex: Female
  Weight: 69 kg

DRUGS (2)
  1. ONBREZ [Suspect]
     Indication: ASTHMA
     Dosage: 300 MG, DAILY
     Route: 055
     Dates: start: 20140401, end: 20140430
  2. ONBREZ [Suspect]
     Indication: OFF LABEL USE

REACTIONS (5)
  - Seasonal allergy [Recovered/Resolved]
  - Asthma [Unknown]
  - Pulmonary hypertension [Unknown]
  - Hypoventilation [Unknown]
  - Bronchial hyperreactivity [Unknown]
